FAERS Safety Report 10474340 (Version 3)
Quarter: 2014Q4

REPORT INFORMATION
  Report Type: Spontaneous
  Country: US (occurrence: US)
  Receive Date: 20140924
  Receipt Date: 20141009
  Transmission Date: 20150528
  Serious: No
  Sender: FDA-Public Use
  Company Number: US-PFIZER INC-2013337286

PATIENT
  Age: 76 Year
  Sex: Female

DRUGS (10)
  1. LEVOTHYROXINE SODIUM. [Concomitant]
     Active Substance: LEVOTHYROXINE SODIUM
     Dosage: 299 UG, AS NEEDED(1 EVERY 4 TO 6 HRS )
  2. LISINOPRIL. [Concomitant]
     Active Substance: LISINOPRIL
     Dosage: 10 MG, UNK(1 PILL EVERY PM)
  3. LORAZEPAM. [Concomitant]
     Active Substance: LORAZEPAM
     Dosage: 8 MG, UNK(1 EVERY 8 HRS)
  4. CELEXA [Concomitant]
     Active Substance: CITALOPRAM HYDROBROMIDE
     Dosage: 40 MG, UNK(TAKE ONE AND ONE-HALF TABLET BY MOUTH EVERY DAY)
  5. HYDROCODONE, PARACETAMOL [Concomitant]
     Dosage: UNK(5-325MG TABS, 1 EVERY 4 TO 6 HRS AS NEEDED)
  6. LEVOTHYROXINE SODIUM. [Concomitant]
     Active Substance: LEVOTHYROXINE SODIUM
     Dosage: 200 UG, 1X/DAY
  7. DICLOFENAC SODIUM. [Concomitant]
     Active Substance: DICLOFENAC SODIUM
     Dosage: 8 MG, (EVERY 6 HOURS AS NEEDED.)
  8. AMBIEN [Concomitant]
     Active Substance: ZOLPIDEM TARTRATE
     Dosage: 10 MG, 1X/DAY(ONE TABLET BY MOUTH AT BEDTIME AS NEEDED.)
  9. LYRICA [Suspect]
     Active Substance: PREGABALIN
     Dosage: 600 MG, DAILY
     Route: 048
  10. OXYBUTYNIN HYDROCHLORIDE [Concomitant]
     Active Substance: OXYBUTYNIN CHLORIDE
     Dosage: 10 MG, DAILY

REACTIONS (9)
  - Pain in extremity [Unknown]
  - Pain [Unknown]
  - Ecchymosis [Unknown]
  - Intentional product misuse [Unknown]
  - Headache [Unknown]
  - Balance disorder [Unknown]
  - Fibromyalgia [Unknown]
  - Neuropathy peripheral [Unknown]
  - Fall [Unknown]
